FAERS Safety Report 11221035 (Version 2)
Quarter: 2015Q3

REPORT INFORMATION
  Report Type: Spontaneous
  Country: US (occurrence: US)
  Receive Date: 20150626
  Receipt Date: 20150908
  Transmission Date: 20151125
  Serious: Yes (Life-Threatening, Hospitalization)
  Sender: FDA-Public Use
  Company Number: US-BRACCO-012312

PATIENT
  Age: 76 Year
  Sex: Male
  Weight: 101 kg

DRUGS (6)
  1. METOPROLOL [Concomitant]
     Active Substance: METOPROLOL
  2. OXYCODONE [Concomitant]
     Active Substance: OXYCODONE
  3. TRAMADOL. [Concomitant]
     Active Substance: TRAMADOL
  4. OMEPRAZOLE. [Concomitant]
     Active Substance: OMEPRAZOLE
  5. MULTIHANCE [Suspect]
     Active Substance: GADOBENATE DIMEGLUMINE
     Indication: NUCLEAR MAGNETIC RESONANCE IMAGING BRAIN
     Route: 042
     Dates: start: 20150623, end: 20150623
  6. LIPITOR [Concomitant]
     Active Substance: ATORVASTATIN CALCIUM

REACTIONS (3)
  - Nausea [Recovered/Resolved]
  - Cardiac arrest [Recovered/Resolved]
  - Depressed level of consciousness [Recovered/Resolved]

NARRATIVE: CASE EVENT DATE: 20150623
